FAERS Safety Report 9967834 (Version 1)
Quarter: 2014Q1

REPORT INFORMATION
  Report Type: Report from Study
  Country: US (occurrence: US)
  Receive Date: 20140306
  Receipt Date: 20140306
  Transmission Date: 20141002
  Serious: No
  Sender: FDA-Public Use
  Company Number: US-ABBVIE-13P-163-1147326-00

PATIENT
  Sex: Female

DRUGS (6)
  1. HUMIRA [Suspect]
     Indication: RHEUMATOID ARTHRITIS
     Dates: start: 201306
  2. METOFORMIN [Concomitant]
     Indication: DIABETES MELLITUS
  3. AVAPRO [Concomitant]
     Indication: HYPERTENSION
     Dosage: DAILY
  4. VITAMIN D [Concomitant]
     Indication: PRODUCT USED FOR UNKNOWN INDICATION
     Dosage: 1000 MG DAILY
  5. CELEBREX [Concomitant]
     Indication: ARTHRITIS
     Dosage: DAILY
  6. HYDRO-SOMETHING ^WATER PILL^ [Concomitant]
     Indication: HYPERTENSION

REACTIONS (3)
  - Limb injury [Not Recovered/Not Resolved]
  - Wound haemorrhage [Not Recovered/Not Resolved]
  - Infection [Not Recovered/Not Resolved]
